FAERS Safety Report 8487721 (Version 8)
Quarter: 2013Q2

REPORT INFORMATION
  Report Type: Report from Study
  Country: US (occurrence: US)
  Receive Date: 20120402
  Receipt Date: 20130514
  Transmission Date: 20140414
  Serious: Yes (Other)
  Sender: FDA-Public Use
  Company Number: US-BAYER-2012-031628

PATIENT
  Age: 76 Year
  Sex: Female

DRUGS (1)
  1. BETASERON [Suspect]
     Indication: MULTIPLE SCLEROSIS
     Dosage: UNK UNK, QOD
     Dates: start: 20111208, end: 20120207

REACTIONS (8)
  - Injection site necrosis [Recovering/Resolving]
  - Injection site pain [Recovering/Resolving]
  - Injection site scab [Recovering/Resolving]
  - Injection site scar [Recovering/Resolving]
  - Injection site rash [None]
  - Injection site mass [Recovering/Resolving]
  - Depression [Not Recovered/Not Resolved]
  - Stress [Not Recovered/Not Resolved]
